FAERS Safety Report 9905005 (Version 1)
Quarter: 2013Q2

REPORT INFORMATION
  Report Type: Spontaneous
  Country: US (occurrence: None)
  Receive Date: 20130305
  Receipt Date: 20130305
  Transmission Date: 20140414
  Serious: Yes (Hospitalization)
  Sender: FDA-Public Use
  Company Number: 163-21880-12041897

PATIENT
  Age: 72 Year
  Sex: Male
  Weight: 58.97 kg

DRUGS (12)
  1. REVLIMID [Suspect]
     Indication: MYELODYSPLASTIC SYNDROME
     Route: 048
     Dates: start: 20091217
  2. ALBUTEROL (SALBUTAMOL) (UNKNOWN) [Concomitant]
  3. ASPIRIN (ACETYLSALICYLIC ACID) (UNKNOWN) (ACETYLSALICYLIC ACID) [Concomitant]
  4. FISH OIL (FISH OIL) (UNKNOWN) [Concomitant]
  5. FOLIC ACID (FOLIC ACID) (UNKNOWN) [Concomitant]
  6. LEVOTHYROXIN (LEVOTHYROXINE SODIUM) (UNKNOWN) [Concomitant]
  7. LISINOPRIL (LISINOPRIL) (UNKNOWN) [Concomitant]
  8. LOPRESSOR (METOPROLOL TARTRATE) (UNKNOWN) [Concomitant]
  9. OMEGA 3 (FISH OIL) (UNKNOWN) [Concomitant]
  10. SPIRIVA (TIOTROPIUM BROMIDE) (UNKNOWN) [Concomitant]
  11. VITAMIN D (ERGOCALCIFEROL) (UNKNOWN) [Concomitant]
  12. VITAMIN C (ASCORBIC ACID) (UNKNOWN) [Concomitant]

REACTIONS (1)
  - Gallbladder pain [None]
